FAERS Safety Report 13140203 (Version 1)
Quarter: 2017Q1

REPORT INFORMATION
  Report Type: Spontaneous
  Country: US (occurrence: US)
  Receive Date: 20170123
  Receipt Date: 20170123
  Transmission Date: 20170428
  Serious: No
  Sender: FDA-Public Use
  Company Number: US-UNITED THERAPEUTICS-UNT-2016-017390

PATIENT
  Sex: Female

DRUGS (1)
  1. REMODULIN [Suspect]
     Active Substance: TREPROSTINIL
     Indication: PULMONARY ARTERIAL HYPERTENSION
     Dosage: 64 ?G/KG, Q72H
     Route: 058
     Dates: start: 201410

REACTIONS (5)
  - Abdominal pain upper [Unknown]
  - Pain [Unknown]
  - Pain in jaw [Unknown]
  - Gingival pain [Unknown]
  - Diarrhoea [Unknown]
